FAERS Safety Report 24618795 (Version 2)
Quarter: 2024Q4

REPORT INFORMATION
  Report Type: Spontaneous
  Country: SA (occurrence: SA)
  Receive Date: 20241114
  Receipt Date: 20241118
  Transmission Date: 20250115
  Serious: Yes (Death, Hospitalization, Other)
  Sender: NOVARTIS
  Company Number: SA-002147023-NVSC2023SA281663

PATIENT
  Age: 1 Year
  Sex: Female

DRUGS (3)
  1. ONASEMNOGENE ABEPARVOVEC [Suspect]
     Active Substance: ONASEMNOGENE ABEPARVOVEC
     Indication: Spinal muscular atrophy
     Dosage: UNK, ONCE/SINGLE  (ADMINISTRATED AS ONE TIME, SINGLE IV INFUSION)
     Route: 042
     Dates: start: 20210809, end: 20210809
  2. ONASEMNOGENE ABEPARVOVEC [Suspect]
     Active Substance: ONASEMNOGENE ABEPARVOVEC
     Dosage: UNK, ONCE/SINGLE (ADMINISTRATED AS ONE TIME, SINGLE IV INFUSION)
     Route: 042
     Dates: start: 20210809, end: 20210809
  3. CHLORAL HYDRATE [Concomitant]
     Active Substance: CHLORAL HYDRATE
     Indication: Product used for unknown indication
     Dosage: UNK, PRN
     Route: 065

REACTIONS (18)
  - Pneumonia [Fatal]
  - Condition aggravated [Fatal]
  - Dyspnoea [Fatal]
  - Oxygen saturation decreased [Fatal]
  - Heart rate increased [Fatal]
  - Cyanosis [Fatal]
  - Pneumonia [Recovered/Resolved]
  - Failure to thrive [Recovered/Resolved]
  - Feeding disorder [Recovered/Resolved]
  - Cough [Unknown]
  - Pyrexia [Unknown]
  - Rhinorrhoea [Unknown]
  - Decreased activity [Unknown]
  - Pneumothorax [Unknown]
  - Spinal muscular atrophy [Unknown]
  - Disease progression [Unknown]
  - Atelectasis [Unknown]
  - Respiratory tract infection viral [Unknown]

NARRATIVE: CASE EVENT DATE: 20230209
